FAERS Safety Report 8543543-1 (Version None)
Quarter: 2012Q3

REPORT INFORMATION
  Report Type: 
  Country: None (occurrence: None)
  Receive Date: 20120727
  Receipt Date: 20120725
  Transmission Date: 20120928
  Serious: Yes (Death, Other)
  Sender: FDA-Public Use
  Company Number: PHHY2012IQ064129

PATIENT
  Sex: Male

DRUGS (2)
  1. MEFENAMIC ACID [Concomitant]
     Dosage: AS REQUIRED
     Route: 048
  2. TASIGNA [Suspect]
     Indication: CHRONIC MYELOID LEUKAEMIA
     Dosage: 800 MG, DAILY
     Route: 048
     Dates: start: 20101201

REACTIONS (2)
  - LIVER DISORDER [None]
  - DEATH [None]
